FAERS Safety Report 7988921-4 (Version None)
Quarter: 2011Q4

REPORT INFORMATION
  Report Type: 
  Country: None (occurrence: None)
  Receive Date: 20111219
  Receipt Date: 20111212
  Transmission Date: 20120403
  Serious: Yes (Life-Threatening, Hospitalization, Other)
  Sender: FDA-Public Use
  Company Number: US-ELI_LILLY_AND_COMPANY-US201107006517

PATIENT
  Sex: Male
  Weight: 92.971 kg

DRUGS (12)
  1. BYETTA [Suspect]
     Dosage: 10 MG, BID
     Dates: end: 20090801
  2. AMITRIPTYLINE HCL [Concomitant]
     Dosage: 75 MG, EACH EVENING
  3. TRICOR [Concomitant]
     Dosage: 145 MG, QD
  4. FLOMAX [Concomitant]
     Dosage: 0.4 MG, EACH EVENING
  5. LOVAZA [Concomitant]
     Dosage: 2 DF, BID
  6. NIFEDIPINE [Concomitant]
     Dosage: 90 MG, QD
  7. ACTOS [Concomitant]
     Dosage: 15 MG, QD
  8. BYETTA [Suspect]
     Indication: PRODUCT USED FOR UNKNOWN INDICATION
     Dosage: UNK, UNKNOWN
  9. CELEBREX [Concomitant]
     Dosage: 200 MG, UNK
  10. GLIPIZIDE [Concomitant]
     Dosage: 10 MG, BID
  11. ATENOLOL [Concomitant]
     Dosage: 50 MG, BID
  12. ALLOPURINOL [Concomitant]
     Dosage: 300 MG, QD

REACTIONS (5)
  - RESPIRATORY FAILURE [None]
  - RENAL FAILURE CHRONIC [None]
  - PANCREATITIS [None]
  - RENAL FAILURE ACUTE [None]
  - COMA [None]
